FAERS Safety Report 15743564 (Version 2)
Quarter: 2019Q1

REPORT INFORMATION
  Report Type: Spontaneous
  Country: US (occurrence: US)
  Receive Date: 20181220
  Receipt Date: 20190121
  Transmission Date: 20190417
  Serious: No
  Sender: FDA-Public Use
  Company Number: US-PFIZER INC-2018522997

PATIENT

DRUGS (6)
  1. DOCETAXEL SANDOZ [Suspect]
     Active Substance: DOCETAXEL
     Dosage: UNK
     Dates: start: 20131122, end: 20140122
  2. TAXOTERE [Suspect]
     Active Substance: DOCETAXEL
     Dosage: UNK
     Dates: start: 20131122, end: 20140122
  3. DOCETAXEL ACTAVIS [Suspect]
     Active Substance: DOCETAXEL
     Dosage: UNK
     Dates: start: 20131122, end: 20140122
  4. DOCETAXEL ACCORD [Suspect]
     Active Substance: DOCETAXEL
     Dosage: UNK
     Dates: start: 20131122, end: 20140122
  5. DOCETAXEL SUN [Suspect]
     Active Substance: DOCETAXEL
     Dosage: UNK
     Dates: start: 20131122, end: 20140122
  6. DOCETAXEL. [Suspect]
     Active Substance: DOCETAXEL
     Dosage: UNK
     Dates: start: 20131122, end: 20140122

REACTIONS (1)
  - Alopecia [Unknown]
